FAERS Safety Report 12694578 (Version 1)
Quarter: 2016Q3

REPORT INFORMATION
  Report Type: Spontaneous
  Country: IT (occurrence: IT)
  Receive Date: 20160829
  Receipt Date: 20160829
  Transmission Date: 20161109
  Serious: Yes (Hospitalization)
  Sender: FDA-Public Use
  Company Number: PHHY2016IT117102

PATIENT
  Age: 85 Year
  Sex: Male

DRUGS (1)
  1. CIPROFLOXACIN. [Suspect]
     Active Substance: CIPROFLOXACIN
     Indication: PRODUCT USED FOR UNKNOWN INDICATION
     Route: 065
     Dates: start: 20160819, end: 20160820

REACTIONS (3)
  - Skin reaction [Unknown]
  - Drug hypersensitivity [Unknown]
  - Blister rupture [Unknown]

NARRATIVE: CASE EVENT DATE: 20160820
